FAERS Safety Report 9638232 (Version 1)
Quarter: 2013Q4

REPORT INFORMATION
  Report Type: Spontaneous
  Country: US (occurrence: US)
  Receive Date: 20131022
  Receipt Date: 20131022
  Transmission Date: 20140711
  Serious: No
  Sender: FDA-Public Use
  Company Number: US-PFIZER INC-2013299686

PATIENT
  Age: 54 Year
  Sex: Male
  Weight: 113.4 kg

DRUGS (3)
  1. NEURONTIN [Suspect]
     Indication: DIABETIC NEUROPATHY
     Dosage: 3600 MG, DAILY
  2. OXYCONTIN [Concomitant]
     Indication: BACK DISORDER
     Dosage: 30 MG, 3X/DAY
  3. OXYCODONE [Concomitant]
     Indication: BACK DISORDER
     Dosage: 30 MG, AS NEEDED

REACTIONS (2)
  - Off label use [Unknown]
  - Drug ineffective for unapproved indication [Unknown]
